FAERS Safety Report 22801468 (Version 4)
Quarter: 2023Q4

REPORT INFORMATION
  Report Type: Other
  Country: PA (occurrence: PA)
  Receive Date: 20230809
  Receipt Date: 20231212
  Transmission Date: 20240109
  Serious: Yes (Death, Disabling)
  Sender: FDA-Public Use
  Company Number: PA-TOLMAR, INC.-23PA041971

PATIENT
  Sex: Male

DRUGS (2)
  1. ELIGARD [Suspect]
     Active Substance: LEUPROLIDE ACETATE
     Indication: Prostate cancer
     Dosage: 45 MILLIGRAM, Q 6 MONTH
     Route: 058
  2. ELIGARD [Suspect]
     Active Substance: LEUPROLIDE ACETATE
     Indication: Prostate cancer
     Dosage: UNK

REACTIONS (4)
  - Cardiac arrest [Fatal]
  - Visual impairment [Not Recovered/Not Resolved]
  - Walking disability [Not Recovered/Not Resolved]
  - Hypoacusis [Not Recovered/Not Resolved]
